FAERS Safety Report 5508069-8 (Version None)
Quarter: 2007Q4

REPORT INFORMATION
  Report Type: 
  Country: None (occurrence: None)
  Receive Date: 20071106
  Receipt Date: 20071029
  Transmission Date: 20080405
  Serious: Yes (Hospitalization)
  Sender: FDA-Public Use
  Company Number: US-PFIZER INC-2007091243

PATIENT
  Age: 14 Day
  Sex: Male

DRUGS (2)
  1. SILDENAFIL (PAH) [Suspect]
     Indication: PULMONARY HYPERTENSION
  2. FUROSEMIDE [Concomitant]

REACTIONS (2)
  - HAEMORRHAGE [None]
  - WOUND DEHISCENCE [None]
